FAERS Safety Report 5826700-4 (Version None)
Quarter: 2008Q3

REPORT INFORMATION
  Report Type: 
  Country: None (occurrence: None)
  Receive Date: 20080725
  Receipt Date: 20080701
  Transmission Date: 20090109
  Serious: No
  Sender: FDA-Public Use
  Company Number: ADE# 08-101

PATIENT
  Age: 57 Year
  Sex: Female
  Weight: 53.978 kg

DRUGS (10)
  1. DIGOXIN [Suspect]
     Indication: CARDIAC FAILURE CONGESTIVE
     Dosage: 1 TABLET EVERY 10AM
  2. PRIMIDONE [Concomitant]
  3. NEURONTIN [Concomitant]
  4. LASIX [Concomitant]
  5. PREDNISONE TAB [Concomitant]
  6. SPIRONOLACTONE [Concomitant]
  7. LISINOPRIL [Concomitant]
  8. BISOPROLOL FUMARATE [Concomitant]
  9. POTASSIUM CHLORIDE [Concomitant]
  10. COUMADIN [Concomitant]

REACTIONS (8)
  - AMNESIA [None]
  - CONDITION AGGRAVATED [None]
  - CONVULSION [None]
  - DISTURBANCE IN ATTENTION [None]
  - DIZZINESS [None]
  - FATIGUE [None]
  - PARAESTHESIA ORAL [None]
  - PHARMACEUTICAL PRODUCT COMPLAINT [None]
